FAERS Safety Report 6379356-9 (Version None)
Quarter: 2009Q3

REPORT INFORMATION
  Report Type: 
  Country: None (occurrence: None)
  Receive Date: 20090923
  Receipt Date: 20090923
  Transmission Date: 20100115
  Serious: Yes (Life-Threatening, Hospitalization)
  Sender: FDA-Public Use
  Company Number: None

PATIENT
  Age: 46 Year
  Sex: Female
  Weight: 62 kg

DRUGS (10)
  1. PERCOCET [Suspect]
     Indication: PAIN
     Dosage: 5/325 MG PO Q 6 ? PRN
     Dates: start: 20081110, end: 20081113
  2. TYLENOL (CAPLET) [Suspect]
     Dosage: UNKNOWN PO
     Route: 048
  3. FLUCONAZOLE [Concomitant]
  4. CA + VIT D [Concomitant]
  5. FOSAMAX [Concomitant]
  6. HYDROCHLOROTHIAZIDE [Concomitant]
  7. NAPROXEN [Concomitant]
  8. PREDNISONE TAB [Concomitant]
  9. PLAQUENIL [Concomitant]
  10. OMEPRAZOLE [Concomitant]

REACTIONS (5)
  - ACUTE HEPATIC FAILURE [None]
  - ARTHRALGIA [None]
  - BACK PAIN [None]
  - HYPOTENSION [None]
  - HYPOXIA [None]
